FAERS Safety Report 16648148 (Version 2)
Quarter: 2019Q3

REPORT INFORMATION
  Report Type: Spontaneous
  Country: CH (occurrence: CH)
  Receive Date: 20190730
  Receipt Date: 20190730
  Transmission Date: 20191004
  Serious: Yes (Other)
  Sender: FDA-Public Use
  Company Number: PHHY2019CH159238

PATIENT
  Age: 28 Year
  Sex: Female

DRUGS (5)
  1. XOLAIR [Suspect]
     Active Substance: OMALIZUMAB
     Dosage: UNK UKN, UNK
     Route: 065
     Dates: start: 2019
  2. XOLAIR [Suspect]
     Active Substance: OMALIZUMAB
     Indication: CHRONIC SPONTANEOUS URTICARIA
     Dosage: 300 MG, UNK (EVERY TWO TO FOUR WEEKS FOR SEVEN MONTHS)
     Route: 065
     Dates: start: 201410, end: 201504
  3. CICLOSPORIN [Suspect]
     Active Substance: CYCLOSPORINE
     Indication: CHRONIC SPONTANEOUS URTICARIA
     Dosage: 2 MG/KG, UNK (3-4 TIMES A DAY, FOR 3 MONTHS)
     Route: 065
     Dates: start: 201508, end: 201511
  4. XOLAIR [Suspect]
     Active Substance: OMALIZUMAB
     Dosage: UNK UKN, UNK
     Route: 065
     Dates: start: 2019, end: 201906
  5. XOLAIR [Suspect]
     Active Substance: OMALIZUMAB
     Dosage: UNK UKN, UNK
     Route: 065
     Dates: start: 201903

REACTIONS (6)
  - Angioedema [Not Recovered/Not Resolved]
  - Suicidal ideation [Not Recovered/Not Resolved]
  - Adjustment disorder with depressed mood [Not Recovered/Not Resolved]
  - Urticaria [Not Recovered/Not Resolved]
  - Therapy non-responder [Unknown]
  - Drug resistance [Not Recovered/Not Resolved]
